FAERS Safety Report 8424146-6 (Version None)
Quarter: 2012Q2

REPORT INFORMATION
  Report Type: 
  Country: None (occurrence: None)
  Receive Date: 20120608
  Receipt Date: 20120206
  Transmission Date: 20120825
  Serious: No
  Sender: FDA-Public Use
  Company Number: US-ASTRAZENECA-2012SE08013

PATIENT
  Age: 74 Year
  Sex: Female
  Weight: 61.2 kg

DRUGS (9)
  1. AMLODIPINE [Concomitant]
  2. LIPITOR [Concomitant]
  3. SERTRALINE HYDROCHLORIDE [Concomitant]
  4. METFORMIN HYDROCHLORIDE [Concomitant]
  5. ATENOLOL [Concomitant]
  6. ASPIRIN [Concomitant]
  7. MELOXICAM [Concomitant]
  8. PULMICORT FLEXHALER [Suspect]
     Indication: PNEUMONIA
     Dosage: 180 MCG, TWO TIMES A DAY
     Route: 055
  9. BUPROPION HCL [Concomitant]

REACTIONS (2)
  - CANDIDIASIS [None]
  - OFF LABEL USE [None]
